FAERS Safety Report 13622411 (Version 2)
Quarter: 2017Q3

REPORT INFORMATION
  Report Type: Spontaneous
  Country: JP (occurrence: JP)
  Receive Date: 20170607
  Receipt Date: 20170711
  Transmission Date: 20171127
  Serious: Yes (Other)
  Sender: FDA-Public Use
  Company Number: PHJP2017JP018364

PATIENT
  Age: 72 Year
  Sex: Female

DRUGS (1)
  1. GLIVEC [Suspect]
     Active Substance: IMATINIB MESYLATE
     Indication: GASTROINTESTINAL STROMAL TUMOUR
     Dosage: 300 MG, 3-WEEK DOSING, 3-WEEK DRUG WITHDRAWAL
     Route: 048

REACTIONS (3)
  - Concomitant disease progression [Recovering/Resolving]
  - Myasthenia gravis [Recovering/Resolving]
  - Asthenopia [Recovered/Resolved]
